FAERS Safety Report 8186957 (Version 3)
Quarter: 2015Q4

REPORT INFORMATION
  Report Type: Spontaneous
  Country: US (occurrence: US)
  Receive Date: 20111018
  Receipt Date: 20151120
  Transmission Date: 20160305
  Serious: Yes (Other)
  Sender: FDA-Public Use
  Company Number: US-ASTRAZENECA-2011SE15944

PATIENT
  Age: 89 Year
  Sex: Female
  Weight: 86.2 kg

DRUGS (3)
  1. PREDNISONE. [Concomitant]
     Active Substance: PREDNISONE
  2. MUCINEX [Concomitant]
     Active Substance: GUAIFENESIN
  3. SYMBICORT [Suspect]
     Active Substance: BUDESONIDE\FORMOTEROL FUMARATE DIHYDRATE
     Indication: PULMONARY FIBROSIS
     Dosage: 160/4.5 MCG 2 PUFFS BID
     Route: 055

REACTIONS (14)
  - Musculoskeletal discomfort [Unknown]
  - Intervertebral disc protrusion [Unknown]
  - Neoplasm malignant [Unknown]
  - Polymyalgia rheumatica [Unknown]
  - Product use issue [Unknown]
  - Lung disorder [Unknown]
  - Fibrosis [Unknown]
  - Hearing impaired [Unknown]
  - Dyspnoea exertional [Unknown]
  - Gait disturbance [Unknown]
  - Pain [Unknown]
  - Muscle disorder [Unknown]
  - Off label use [Unknown]
  - Malaise [Unknown]

NARRATIVE: CASE EVENT DATE: 2015
